FAERS Safety Report 22388039 (Version 1)
Quarter: 2023Q2

REPORT INFORMATION
  Report Type: Spontaneous
  Country: ES (occurrence: ES)
  Receive Date: 20230531
  Receipt Date: 20230531
  Transmission Date: 20230722
  Serious: Yes (Hospitalization)
  Sender: FDA-Public Use
  Company Number: None

PATIENT
  Age: 24 Year
  Sex: Female

DRUGS (2)
  1. CLONAZEPAM [Suspect]
     Active Substance: CLONAZEPAM
     Indication: Mixed anxiety and depressive disorder
     Dosage: DAILY DOSE: 2.5 MILLIGRAM
     Route: 048
     Dates: start: 20230221, end: 20230331
  2. SERTRALINE [Suspect]
     Active Substance: SERTRALINE HYDROCHLORIDE
     Indication: Mixed anxiety and depressive disorder
     Dosage: DAILY DOSE: 50 MILLIGRAM
     Route: 048
     Dates: start: 20230307, end: 20230407

REACTIONS (7)
  - Hyperbilirubinaemia [Recovering/Resolving]
  - Pruritus [Recovering/Resolving]
  - Hepatitis cholestatic [Recovering/Resolving]
  - Rash erythematous [Unknown]
  - Somnolence [Unknown]
  - Nausea [Recovered/Resolved]
  - Abdominal discomfort [Unknown]

NARRATIVE: CASE EVENT DATE: 20230101
